FAERS Safety Report 13894119 (Version 1)
Quarter: 2017Q3

REPORT INFORMATION
  Report Type: Spontaneous
  Country: CN (occurrence: CN)
  Receive Date: 20170822
  Receipt Date: 20170822
  Transmission Date: 20171127
  Serious: Yes (Other)
  Sender: FDA-Public Use
  Company Number: CN-IMPAX LABORATORIES, INC-2017-IPXL-02449

PATIENT
  Age: 47 Year
  Sex: Female

DRUGS (9)
  1. PROPRANOLOL HYDROCHLORIDE IR [Suspect]
     Active Substance: PROPRANOLOL HYDROCHLORIDE
     Indication: AKATHISIA
     Dosage: 10 MG, 2 /DAY
     Route: 065
  2. ARIPIPRAZOLE. [Concomitant]
     Active Substance: ARIPIPRAZOLE
     Dosage: 20 MG, DAILY
     Route: 065
  3. PROPRANOLOL HYDROCHLORIDE IR [Interacting]
     Active Substance: PROPRANOLOL HYDROCHLORIDE
     Indication: PRODUCT USE IN UNAPPROVED INDICATION
  4. QUETIAPINE. [Concomitant]
     Active Substance: QUETIAPINE
     Indication: SCHIZOPHRENIA
     Dosage: 100 MG, BEDTIME
     Route: 065
  5. ARIPIPRAZOLE. [Concomitant]
     Active Substance: ARIPIPRAZOLE
     Indication: SCHIZOPHRENIA
     Dosage: 10 MG, DAILY
     Route: 065
  6. OXAZEPAM. [Suspect]
     Active Substance: OXAZEPAM
     Indication: INSOMNIA
     Dosage: 30 MG, BEDTIME
     Route: 065
  7. OLANZAPINE. [Interacting]
     Active Substance: OLANZAPINE
     Indication: SCHIZOPHRENIA
     Dosage: 20 MG, BEDTIME
     Route: 065
  8. OLANZAPINE. [Interacting]
     Active Substance: OLANZAPINE
     Dosage: 10 MG, DAILY
     Route: 065
  9. BENZHEXOL [Suspect]
     Active Substance: TRIHEXYPHENIDYL
     Indication: EXTRAPYRAMIDAL DISORDER
     Dosage: 2 MG, 2 /DAY
     Route: 065

REACTIONS (5)
  - Facial pain [Unknown]
  - Product use in unapproved indication [Unknown]
  - Arthralgia [Unknown]
  - Drug interaction [Unknown]
  - Somnambulism [Recovered/Resolved]
